FAERS Safety Report 16211094 (Version 3)
Quarter: 2019Q2

REPORT INFORMATION
  Report Type: Spontaneous
  Country: CN (occurrence: CN)
  Receive Date: 20190418
  Receipt Date: 20190605
  Transmission Date: 20190711
  Serious: Yes (Other)
  Sender: FDA-Public Use
  Company Number: CN-ABBVIE-19P-035-2750234-00

PATIENT
  Sex: Female
  Weight: 62 kg

DRUGS (3)
  1. MICARDIS [Concomitant]
     Active Substance: TELMISARTAN
     Indication: HYPERTENSION
  2. LIPANTHYL [Suspect]
     Active Substance: FENOFIBRATE
     Indication: HYPERLIPIDAEMIA
     Route: 048
     Dates: start: 2018, end: 2018
  3. PLAVIX [Concomitant]
     Active Substance: CLOPIDOGREL BISULFATE
     Indication: THROMBOSIS PROPHYLAXIS
     Dates: start: 2011

REACTIONS (9)
  - Suicidal ideation [Recovered/Resolved]
  - Urinary tract inflammation [Recovered/Resolved]
  - Pyrexia [Recovered/Resolved]
  - Gastrointestinal oedema [Recovered/Resolved]
  - Oedema due to renal disease [Recovered/Resolved]
  - Dysuria [Recovered/Resolved]
  - Nasopharyngitis [Recovered/Resolved]
  - Dyschezia [Recovered/Resolved]
  - Insomnia [Recovered/Resolved]

NARRATIVE: CASE EVENT DATE: 2018
